FAERS Safety Report 7529690-1 (Version None)
Quarter: 2011Q2

REPORT INFORMATION
  Report Type: 
  Country: None (occurrence: None)
  Receive Date: 20110607
  Receipt Date: 20110523
  Transmission Date: 20111010
  Serious: Yes (Hospitalization, Congenital Anomaly)
  Sender: FDA-Public Use
  Company Number: A0930411A

PATIENT
  Sex: Female
  Weight: 2.9 kg

DRUGS (4)
  1. PAXIL CR [Suspect]
     Indication: DEPRESSED MOOD
     Dosage: 12.5MG PER DAY
     Route: 064
  2. FERROUS SULFATE TAB [Concomitant]
  3. ZOLOFT [Concomitant]
  4. PRENATAL VITAMINS [Concomitant]

REACTIONS (8)
  - DRUG EXPOSURE DURING PREGNANCY [None]
  - VENTRICULAR SEPTAL DEFECT [None]
  - ANOMALOUS PULMONARY VENOUS CONNECTION [None]
  - CARDIOMYOPATHY [None]
  - PATENT DUCTUS ARTERIOSUS [None]
  - ATRIAL SEPTAL DEFECT [None]
  - RIGHT AORTIC ARCH [None]
  - CYSTIC LYMPHANGIOMA [None]
